FAERS Safety Report 18960643 (Version 1)
Quarter: 2021Q1

REPORT INFORMATION
  Report Type: Spontaneous
  Country: US (occurrence: US)
  Receive Date: 20210302
  Receipt Date: 20210302
  Transmission Date: 20210420
  Serious: Yes (Hospitalization)
  Sender: FDA-Public Use
  Company Number: US-ELI_LILLY_AND_COMPANY-US202102011103

PATIENT
  Age: 91 Year
  Sex: Male
  Weight: 71.3 kg

DRUGS (1)
  1. BAMLANIVIMAB 700MG [Suspect]
     Active Substance: BAMLANIVIMAB
     Indication: COVID-19
     Dosage: 700 MG, SINGLE
     Route: 041
     Dates: start: 20210205, end: 20210205

REACTIONS (7)
  - Pyrexia [Unknown]
  - Chills [Unknown]
  - Hypoxia [Unknown]
  - Blood urea increased [Unknown]
  - Tachycardia [Unknown]
  - Blood creatinine increased [Unknown]
  - COVID-19 [Unknown]

NARRATIVE: CASE EVENT DATE: 20210205
